FAERS Safety Report 16629962 (Version 6)
Quarter: 2020Q4

REPORT INFORMATION
  Report Type: Report from Study
  Country: CA (occurrence: CA)
  Receive Date: 20190725
  Receipt Date: 20201130
  Transmission Date: 20210113
  Serious: Yes (Other)
  Sender: FDA-Public Use
  Company Number: PHHY2018CA036969

PATIENT
  Sex: Female

DRUGS (11)
  1. TRAMETINIB [Suspect]
     Active Substance: TRAMETINIB
     Indication: NEUROFIBROMA
     Dosage: 0.23 MG, QD (VIA G TUBE)
     Route: 048
     Dates: start: 20171228
  2. HYDROCORTISONE. [Concomitant]
     Active Substance: HYDROCORTISONE
     Indication: PRODUCT USED FOR UNKNOWN INDICATION
     Route: 065
  3. TRAMETINIB [Suspect]
     Active Substance: TRAMETINIB
     Indication: RESPIRATORY FAILURE
     Dosage: 0.032 MG/KG, QD
     Route: 048
     Dates: start: 20181018
  4. TRAMETINIB [Suspect]
     Active Substance: TRAMETINIB
     Indication: DYSPHAGIA
     Dosage: 0.025 MG/KG, QD
     Route: 048
  5. BETAMETHASONE VALERATE. [Concomitant]
     Active Substance: BETAMETHASONE VALERATE
     Indication: PRODUCT USED FOR UNKNOWN INDICATION
     Route: 065
  6. ONDANSETRON [Concomitant]
     Active Substance: ONDANSETRON
     Indication: PRODUCT USED FOR UNKNOWN INDICATION
     Dosage: UNK UNK, QD
     Route: 065
  7. SEPTRA [Concomitant]
     Active Substance: SULFAMETHOXAZOLE\TRIMETHOPRIM
     Indication: PRODUCT USED FOR UNKNOWN INDICATION
     Dosage: SATURDAY/ SUNDAY
     Route: 065
  8. TRAMETINIB [Suspect]
     Active Substance: TRAMETINIB
     Dosage: 0.042 MG/KG, QD
     Route: 048
  9. TRAMETINIB [Suspect]
     Active Substance: TRAMETINIB
     Dosage: 0.43 MG, QD (IVA G TUBE)
     Route: 050
  10. OMEPRAZOLE. [Concomitant]
     Active Substance: OMEPRAZOLE
     Indication: PRODUCT USED FOR UNKNOWN INDICATION
     Route: 065
  11. DABRAFENIB [Suspect]
     Active Substance: DABRAFENIB
     Indication: NEUROFIBROMA
     Dosage: UNK
     Route: 048
     Dates: start: 20171229

REACTIONS (30)
  - Perichondritis [Recovered/Resolved]
  - Skin ulcer [Not Recovered/Not Resolved]
  - Neurofibroma [Recovering/Resolving]
  - Skin ulcer [Recovered/Resolved]
  - Eczema [Recovered/Resolved]
  - Eczema [Recovered/Resolved]
  - Gastritis [Recovered/Resolved]
  - Eczema [Recovered/Resolved]
  - Paronychia [Recovered/Resolved]
  - Eczema [Unknown]
  - Scoliosis [Not Recovered/Not Resolved]
  - Pyrexia [Recovered/Resolved]
  - Eczema [Recovered/Resolved]
  - Hepatic enzyme increased [Recovered/Resolved]
  - Skin ulcer [Recovered/Resolved]
  - Skin abrasion [Recovering/Resolving]
  - Lip swelling [Recovered/Resolved]
  - Pyrexia [Recovered/Resolved]
  - Respiratory syncytial virus infection [Recovered/Resolved]
  - Paronychia [Unknown]
  - Cough [Recovered/Resolved]
  - Blood triglycerides increased [Recovered/Resolved]
  - High density lipoprotein increased [Recovered/Resolved]
  - Perichondritis [Unknown]
  - Influenza [Recovered/Resolved]
  - Diarrhoea [Recovered/Resolved]
  - Pneumonia [Recovered/Resolved]
  - Neoplasm progression [Recovering/Resolving]
  - Gastroenteritis [Recovered/Resolved]
  - Upper respiratory tract infection [Recovered/Resolved]

NARRATIVE: CASE EVENT DATE: 20180121
